FAERS Safety Report 6038929-3 (Version None)
Quarter: 2009Q1

REPORT INFORMATION
  Report Type: 
  Country: None (occurrence: None)
  Receive Date: 20090114
  Receipt Date: 20090114
  Transmission Date: 20090719
  Serious: Yes (Other)
  Sender: FDA-Public Use
  Company Number: None

PATIENT
  Age: 40 Year
  Sex: Female
  Weight: 77.1115 kg

DRUGS (2)
  1. FLUVOXAMINE MALEATE [Suspect]
     Indication: ANXIETY
     Dates: start: 20061015, end: 20081231
  2. FLUVOXAMINE MALEATE [Suspect]
     Indication: DEPRESSION
     Dates: start: 20061015, end: 20081231

REACTIONS (6)
  - DRUG WITHDRAWAL SYNDROME [None]
  - FRUSTRATION [None]
  - INFLUENZA LIKE ILLNESS [None]
  - NAUSEA [None]
  - PARAESTHESIA [None]
  - VOMITING [None]
